FAERS Safety Report 8381003-1 (Version None)
Quarter: 2012Q2

REPORT INFORMATION
  Report Type: 
  Country: None (occurrence: None)
  Receive Date: 20120522
  Receipt Date: 20120106
  Transmission Date: 20120825
  Serious: Yes (Hospitalization)
  Sender: FDA-Public Use
  Company Number: 2012-00343

PATIENT
  Age: 73 Year
  Sex: Male

DRUGS (2)
  1. THERACYS [Suspect]
     Indication: BLADDER CANCER
     Dosage: MAINTENANCE TREATMENT,I.VES.
  2. LISINOPRIL [Concomitant]

REACTIONS (1)
  - BOVINE TUBERCULOSIS [None]
